FAERS Safety Report 10215779 (Version 3)
Quarter: 2014Q3

REPORT INFORMATION
  Report Type: Spontaneous
  Country: BR (occurrence: BR)
  Receive Date: 20140604
  Receipt Date: 20140805
  Transmission Date: 20150326
  Serious: Yes (Hospitalization, Other)
  Sender: FDA-Public Use
  Company Number: PHHY2014BR066189

PATIENT
  Age: 77 Year
  Sex: Female
  Weight: 63 kg

DRUGS (10)
  1. PURAN [Concomitant]
     Active Substance: LEVOTHYROXINE SODIUM
     Indication: HYPOTHYROIDISM
     Dosage: 1 DF, A DAY
     Route: 048
  2. FRISIUM [Concomitant]
     Active Substance: CLOBAZAM
     Indication: ANXIETY
     Dosage: 1 DF, A DAY
     Route: 048
  3. DIOVAN HCT [Suspect]
     Active Substance: HYDROCHLOROTHIAZIDE\VALSARTAN
     Indication: HYPERTENSION
     Dosage: 1 DF (VALS 320 MG, HCTZ 12.5 MG), A DAY
     Route: 048
     Dates: start: 2009
  4. PENTOXIFYLLINE. [Concomitant]
     Active Substance: PENTOXIFYLLINE
     Indication: CARDIOVASCULAR DISORDER
     Dosage: 1 DF, BID
     Route: 048
  5. METFORMIN [Concomitant]
     Active Substance: METFORMIN HYDROCHLORIDE
     Indication: DIABETES MELLITUS
     Dosage: 1 DF, BID
     Route: 048
  6. TEGRETON CR [Concomitant]
     Indication: CEREBRAL ISCHAEMIA
     Dosage: 1 DF, A DAY
     Route: 048
  7. CALTREN [Suspect]
     Active Substance: NITRENDIPINE
     Indication: HYPERTENSION
     Dosage: 1 DF, A DAY
  8. SOMALGIN [Concomitant]
     Active Substance: ASPIRIN\DIHYDROXYALUMINUM AMINOACETATE ANHYDROUS\MAGNESIUM CARBONATE
     Indication: CARDIOVASCULAR DISORDER
     Dosage: 1 DF, A DAY
     Route: 048
  9. AMLODIPINE [Concomitant]
     Active Substance: AMLODIPINE BESYLATE
     Indication: HYPERTENSION
     Dosage: 1 DF, A DAY
     Route: 048
     Dates: start: 20140528
  10. DIAMICRON [Concomitant]
     Active Substance: GLICLAZIDE
     Indication: DIABETES MELLITUS
     Dosage: 2 DF, A DAY
     Route: 048

REACTIONS (5)
  - Drug ineffective [Not Recovered/Not Resolved]
  - Convulsion [Recovering/Resolving]
  - Blood cholesterol increased [Recovered/Resolved]
  - Blood pressure diastolic decreased [Unknown]
  - Hypertension [Not Recovered/Not Resolved]

NARRATIVE: CASE EVENT DATE: 20140505
